FAERS Safety Report 8837907 (Version 1)
Quarter: 2012Q4

REPORT INFORMATION
  Report Type: 
  Country: US (occurrence: US)
  Receive Date: 20121012
  Receipt Date: 20121012
  Transmission Date: 20130627
  Serious: Yes (Hospitalization)
  Sender: FDA-Public Use
  Company Number: US-BAYER-2012-103615

PATIENT
  Age: 39 Year
  Sex: Female

DRUGS (6)
  1. YASMIN [Suspect]
  2. XOPENEX [Concomitant]
     Dosage: 15 mg, UNK
     Route: 045
  3. NORVASC [Concomitant]
     Dosage: 10 mg, UNK
     Route: 048
  4. GLIPIZIDE [Concomitant]
     Dosage: 2.5 mg, UNK
     Route: 048
  5. PREVACID [Concomitant]
     Dosage: 30 mg, UNK
     Route: 048
  6. FLUCONAZOLE [Concomitant]
     Dosage: 150 mg, UNK
     Route: 048

REACTIONS (2)
  - Pulmonary embolism [None]
  - Deep vein thrombosis [None]
